FAERS Safety Report 11216123 (Version 1)
Quarter: 2015Q2

REPORT INFORMATION
  Report Type: Report from Study
  Country: FR (occurrence: FR)
  Receive Date: 20150624
  Receipt Date: 20150624
  Transmission Date: 20150821
  Serious: Yes (Hospitalization, Other)
  Sender: FDA-Public Use
  Company Number: FR-GLAXOSMITHKLINE-FR2015GSK088895

PATIENT

DRUGS (8)
  1. COVERSYL [Concomitant]
     Active Substance: PERINDOPRIL
  2. IKOREL [Concomitant]
     Active Substance: NICORANDIL
  3. AMLOR [Concomitant]
     Active Substance: AMLODIPINE BESYLATE
  4. PLAVIX [Concomitant]
     Active Substance: CLOPIDOGREL BISULFATE
  5. KARDEGIC [Concomitant]
     Active Substance: ASPIRIN LYSINE
  6. TAHOR [Concomitant]
     Active Substance: ATORVASTATIN CALCIUM
  7. OMEGA-3-ACID ETHYL ESTERS. [Suspect]
     Active Substance: OMEGA-3-ACID ETHYL ESTERS
     Indication: ISCHAEMIC HEART DISEASE PROPHYLAXIS
     Dosage: UNK
     Dates: start: 20110115, end: 20130228
  8. CARDENSIEL [Concomitant]
     Active Substance: BISOPROLOL FUMARATE

REACTIONS (1)
  - Pneumonia [Unknown]

NARRATIVE: CASE EVENT DATE: 20140101
